FAERS Safety Report 6585031-8 (Version None)
Quarter: 2010Q1

REPORT INFORMATION
  Report Type: 
  Country: None (occurrence: None)
  Receive Date: 20100204
  Receipt Date: 20100126
  Transmission Date: 20100710
  Serious: Yes (Other)
  Sender: FDA-Public Use
  Company Number: 2010US000254

PATIENT

DRUGS (1)
  1. PROGRAF [Suspect]
     Indication: INTESTINAL TRANSPLANT

REACTIONS (2)
  - INTESTINE TRANSPLANT REJECTION [None]
  - OFF LABEL USE [None]
